FAERS Safety Report 9788944 (Version 1)
Quarter: 2013Q4

REPORT INFORMATION
  Report Type: Spontaneous
  Country: DE (occurrence: DE)
  Receive Date: 20131230
  Receipt Date: 20131230
  Transmission Date: 20140711
  Serious: Yes (Hospitalization)
  Sender: FDA-Public Use
  Company Number: DE-TEVA-452353GER

PATIENT
  Age: 76 Year
  Sex: Male

DRUGS (5)
  1. BECLOMETASON-RATIOPHARM 100 MICROGRAMM DOSIERAEROSOL [Suspect]
     Indication: BRONCHITIS CHRONIC
     Dosage: 200 MICROGRAM DAILY;
     Route: 055
  2. BISOHEXAL 10 MG [Concomitant]
  3. ATACAND PLUS 1/200 [Concomitant]
  4. MARCUMAR [Concomitant]
  5. NOVODIGAL [Concomitant]

REACTIONS (1)
  - Tendon rupture [Not Recovered/Not Resolved]
